FAERS Safety Report 17550576 (Version 4)
Quarter: 2020Q2

REPORT INFORMATION
  Report Type: Spontaneous
  Country: US (occurrence: US)
  Receive Date: 20200317
  Receipt Date: 20200626
  Transmission Date: 20200713
  Serious: No
  Sender: FDA-Public Use
  Company Number: US-PFIZER INC-2020114633

PATIENT
  Age: 54 Year
  Sex: Female
  Weight: 95.4 kg

DRUGS (15)
  1. HYDROCODONE [Concomitant]
     Active Substance: HYDROCODONE
     Indication: PAIN
     Dosage: UNK, DAILY [10/325. 6 A DAY BY MOUTH]
     Route: 048
     Dates: start: 2011
  2. VITAMIN D3 [Concomitant]
     Active Substance: CHOLECALCIFEROL
     Dosage: UNK
     Dates: start: 2010
  3. IRON [Concomitant]
     Active Substance: IRON
     Dosage: UNK
     Dates: start: 2018
  4. GABAPENTIN. [Concomitant]
     Active Substance: GABAPENTIN
     Indication: FIBROMYALGIA
     Dosage: 1200 MG, 3X/DAY (600 MG TABLETS 2 TABLETS THREE TIMES DAILY BY MOUTH)
     Route: 048
     Dates: start: 2015
  5. ESTROVEN [Concomitant]
     Active Substance: DIETARY SUPPLEMENT
     Indication: HOT FLUSH
     Dosage: UNK
     Dates: start: 2019
  6. LYRICA [Suspect]
     Active Substance: PREGABALIN
     Dosage: 150 MG, 3X/DAY (ONE CAPSULE THREE TIMES A DAY BY MOUTH)
     Route: 048
     Dates: start: 2005
  7. OMEPRAZOLE. [Concomitant]
     Active Substance: OMEPRAZOLE
     Indication: GASTROOESOPHAGEAL REFLUX DISEASE
     Dosage: 20 MG, 1X/DAY
     Dates: start: 2000
  8. EFFEXOR [Concomitant]
     Active Substance: VENLAFAXINE HYDROCHLORIDE
     Dosage: UNK
     Dates: start: 2000
  9. VITAMIN D3 [Concomitant]
     Active Substance: CHOLECALCIFEROL
     Dosage: 10000 IU, DAILY[125 MCG PER PEARL BY MOUTH. 2 PEARLS A DAY]
     Route: 048
     Dates: start: 2005
  10. IBUPROFEN [IBUPROFEN SODIUM] [Concomitant]
     Dosage: 800 MG, 3X/DAY
     Dates: start: 2010
  11. ACETYLSALICYLIC ACID/BUTALBITAL/CAFFEINE/PHENACETIN [Concomitant]
     Active Substance: ASPIRIN\BUTALBITAL\CAFFEINE\PHENACETIN
     Indication: TENSION HEADACHE
     Dosage: 1 DF, AS NEEDED (50/325-40. TAKE ONE AS NEEDED AND AFTER 1 HOUR HEADACHE HAS NOT SUBSIDED, TAKE ANO)
     Dates: start: 2011
  12. LYRICA [Suspect]
     Active Substance: PREGABALIN
     Indication: FIBROMYALGIA
     Dosage: 50 MG, DAILY
  13. GABAPENTIN. [Concomitant]
     Active Substance: GABAPENTIN
     Dosage: UNK
     Dates: start: 2010
  14. EFFEXOR [Concomitant]
     Active Substance: VENLAFAXINE HYDROCHLORIDE
     Indication: DEPRESSION
     Dosage: 150 MG, 1X/DAY
     Dates: start: 1993
  15. IRON [Concomitant]
     Active Substance: IRON
     Indication: ANAEMIA
     Dosage: 65 MG, 2X/DAY (65 MG. TWICE A DAY BY MOUTH)
     Route: 048
     Dates: start: 201903

REACTIONS (4)
  - Tension headache [Recovered/Resolved]
  - Intentional product use issue [Unknown]
  - Rhinorrhoea [Unknown]
  - Nodule [Not Recovered/Not Resolved]

NARRATIVE: CASE EVENT DATE: 2012
